FAERS Safety Report 4924297-4 (Version None)
Quarter: 2006Q1

REPORT INFORMATION
  Report Type: 
  Country: None (occurrence: None)
  Receive Date: 20060227
  Receipt Date: 20060104
  Transmission Date: 20060701
  Serious: No
  Sender: FDA-Public Use
  Company Number: US-GLAXOSMITHKLINE-A0587772A

PATIENT
  Age: 53 Year
  Sex: Female
  Weight: 75.9 kg

DRUGS (4)
  1. WELLBUTRIN XL [Suspect]
     Indication: DEPRESSION
     Dosage: 450MG PER DAY
     Route: 048
     Dates: start: 20050801
  2. ESTROGEN REPLACEMENT [Concomitant]
     Dates: start: 20050101
  3. PROGESTERONE [Concomitant]
     Dates: start: 20050101
  4. ACTONEL [Concomitant]
     Dates: start: 20050101

REACTIONS (1)
  - FORMICATION [None]
